FAERS Safety Report 7559710-X (Version None)
Quarter: 2011Q2

REPORT INFORMATION
  Report Type: 
  Country: None (occurrence: None)
  Receive Date: 20110621
  Receipt Date: 20110609
  Transmission Date: 20111010
  Serious: Yes (Hospitalization, Other)
  Sender: FDA-Public Use
  Company Number: US-ELI_LILLY_AND_COMPANY-US201106003478

PATIENT
  Age: 55 Year
  Sex: Female

DRUGS (3)
  1. LEXAPRO [Concomitant]
  2. BACLOFEN [Concomitant]
  3. CYMBALTA [Suspect]
     Indication: GENERALISED ANXIETY DISORDER
     Dosage: 120 MG, UNKNOWN

REACTIONS (4)
  - HOSPITALISATION [None]
  - PAIN [None]
  - PSYCHOTIC DISORDER [None]
  - SPEECH DISORDER [None]
